FAERS Safety Report 6520886-4 (Version None)
Quarter: 2009Q4

REPORT INFORMATION
  Report Type: 
  Country: None (occurrence: None)
  Receive Date: 20091229
  Receipt Date: 20091222
  Transmission Date: 20100525
  Serious: Yes (Death, Other)
  Sender: FDA-Public Use
  Company Number: ZA-JNJFOC-20091207121

PATIENT
  Age: 76 Year
  Sex: Male
  Weight: 35 kg

DRUGS (1)
  1. DURAGESIC-100 [Suspect]
     Indication: CANCER PAIN
     Route: 062

REACTIONS (3)
  - ANAESTHETIC COMPLICATION [None]
  - MALIGNANT NEOPLASM PROGRESSION [None]
  - URETHRAL HAEMORRHAGE [None]
